FAERS Safety Report 8319480-4 (Version None)
Quarter: 2012Q2

REPORT INFORMATION
  Report Type: 
  Country: None (occurrence: None)
  Receive Date: 20120427
  Receipt Date: 20120419
  Transmission Date: 20120825
  Serious: Yes (Other)
  Sender: FDA-Public Use
  Company Number: SE-JNJFOC-20120410003

PATIENT
  Age: 10 Year
  Sex: Male

DRUGS (1)
  1. CONCERTA [Suspect]
     Indication: ATTENTION DEFICIT/HYPERACTIVITY DISORDER
     Route: 048
     Dates: start: 20120216, end: 20120417

REACTIONS (4)
  - EYE MOVEMENT DISORDER [None]
  - PSYCHOTIC BEHAVIOUR [None]
  - STARING [None]
  - ABNORMAL BEHAVIOUR [None]
